FAERS Safety Report 5644175-5 (Version None)
Quarter: 2008Q1

REPORT INFORMATION
  Report Type: 
  Country: None (occurrence: None)
  Receive Date: 20080227
  Receipt Date: 20080227
  Transmission Date: 20080703
  Serious: Yes (Hospitalization)
  Sender: FDA-Public Use
  Company Number: None

PATIENT
  Age: 74 Year
  Sex: Male

DRUGS (1)
  1. FONDAPARINUX [Suspect]
     Indication: ANTICOAGULANT THERAPY
     Dosage: 2.5 MG EVERY DAY SQ
     Route: 058
     Dates: start: 20070508, end: 20070511

REACTIONS (2)
  - POST PROCEDURAL HAEMATOMA [None]
  - POST PROCEDURAL HAEMORRHAGE [None]
